FAERS Safety Report 9256473 (Version 2)
Quarter: 2013Q2

REPORT INFORMATION
  Report Type: Spontaneous
  Country: US (occurrence: US)
  Receive Date: 20130426
  Receipt Date: 20130613
  Transmission Date: 20140414
  Serious: Yes (Death)
  Sender: FDA-Public Use
  Company Number: US-BIOGENIDEC-2013BI035070

PATIENT
  Age: 47 Year
  Sex: Male

DRUGS (3)
  1. TYSABRI [Suspect]
     Indication: MULTIPLE SCLEROSIS
     Route: 042
     Dates: start: 20090618, end: 20130325
  2. TYLENOL [Concomitant]
  3. AMITRIPTYLINE [Concomitant]
     Indication: INSOMNIA
     Dates: start: 2011

REACTIONS (2)
  - Arrhythmia [Fatal]
  - Hypertension [Fatal]
